FAERS Safety Report 7533637-1 (Version None)
Quarter: 2011Q2

REPORT INFORMATION
  Report Type: 
  Country: None (occurrence: None)
  Receive Date: 20110608
  Receipt Date: 20060317
  Transmission Date: 20111010
  Serious: Yes (Death)
  Sender: FDA-Public Use
  Company Number: PHEH2006US03596

PATIENT
  Sex: Male

DRUGS (2)
  1. CLOZAPINE [Suspect]
     Dosage: 350 MG, QD
     Route: 048
     Dates: start: 20040601
  2. CLOZAPINE [Suspect]
     Route: 048
     Dates: end: 20040601

REACTIONS (1)
  - DEATH [None]
